FAERS Safety Report 9844767 (Version 1)
Quarter: 2014Q1

REPORT INFORMATION
  Report Type: Spontaneous
  Country: US (occurrence: None)
  Receive Date: 20140123
  Receipt Date: 20140123
  Transmission Date: 20141002
  Serious: Yes (Other)
  Sender: FDA-Public Use
  Company Number: None

PATIENT
  Age: 61 Day
  Sex: Female
  Weight: 84.82 kg

DRUGS (1)
  1. CIPRODEX [Suspect]
     Indication: EAR INFECTION
     Dosage: 4 TO 6 DROPS ONCE DAILY INTO THE EAR
     Dates: start: 20140102, end: 20140109

REACTIONS (1)
  - Tinnitus [None]
